FAERS Safety Report 8365537-1 (Version None)
Quarter: 2012Q2

REPORT INFORMATION
  Report Type: 
  Country: None (occurrence: None)
  Receive Date: 20120516
  Receipt Date: 20120504
  Transmission Date: 20120825
  Serious: No
  Sender: FDA-Public Use
  Company Number: DE-ELI_LILLY_AND_COMPANY-DE201205001851

PATIENT
  Age: 17 Year
  Sex: Male
  Weight: 69 kg

DRUGS (1)
  1. ZYPREXA [Suspect]
     Indication: PSYCHOTIC DISORDER
     Dosage: 10 MG, QD
     Route: 048
     Dates: start: 20110906, end: 20110917

REACTIONS (2)
  - LYMPHOCYTOSIS [None]
  - NEUTROPENIA [None]
